FAERS Safety Report 5413159-4 (Version None)
Quarter: 2007Q3

REPORT INFORMATION
  Report Type: 
  Country: None (occurrence: None)
  Receive Date: 20070810
  Receipt Date: 20070806
  Transmission Date: 20080115
  Serious: Yes (Death)
  Sender: FDA-Public Use
  Company Number: 2007PO0081FU1

PATIENT
  Age: 27 Year
  Sex: Female

DRUGS (4)
  1. PONSTEL [Suspect]
     Dosage: PO
     Route: 048
  2. DARVOCET [Suspect]
     Dosage: PO
     Route: 048
  3. XANAX XR [Concomitant]
  4. SYMBYAX [Concomitant]

REACTIONS (1)
  - INTENTIONAL OVERDOSE [None]
